FAERS Safety Report 6998353-3 (Version None)
Quarter: 2010Q3

REPORT INFORMATION
  Report Type: 
  Country: None (occurrence: None)
  Receive Date: 20100920
  Receipt Date: 20100907
  Transmission Date: 20110219
  Serious: Yes (Other)
  Sender: FDA-Public Use
  Company Number: CA-JNJFOC-20100902962

PATIENT
  Sex: Female
  Weight: 70.4 kg

DRUGS (5)
  1. INFLIXIMAB, RECOMBINANT [Suspect]
     Indication: PSORIATIC ARTHROPATHY
     Dosage: A TOTAL OF 5 DOSES
     Route: 042
  2. INFLIXIMAB, RECOMBINANT [Suspect]
     Route: 042
  3. CESAMET [Concomitant]
  4. SALAGEN [Concomitant]
  5. QUININE SULFATE [Concomitant]

REACTIONS (2)
  - TOOTH REPAIR [None]
  - TOOTHACHE [None]
